FAERS Safety Report 20662920 (Version 1)
Quarter: 2022Q1

REPORT INFORMATION
  Report Type: Spontaneous
  Country: US (occurrence: None)
  Receive Date: 20220331
  Receipt Date: 20220331
  Transmission Date: 20220423
  Serious: Yes (Death)
  Sender: FDA-Public Use
  Company Number: None

PATIENT
  Age: 81 Year
  Sex: Female

DRUGS (20)
  1. ESBRIET [Suspect]
     Active Substance: PIRFENIDONE
     Indication: Interstitial lung disease
     Route: 048
     Dates: start: 20211117, end: 20220314
  2. ALBUTEROL NEB 1.25MG/3 [Concomitant]
  3. BYSTOLIC TAB 5MG [Concomitant]
  4. CRESTOR TAB 5MG [Concomitant]
  5. DILTIAZEM CAP 120MG ER [Concomitant]
  6. ELIQUIS [Concomitant]
     Active Substance: APIXABAN
  7. ESBRIET [Concomitant]
     Active Substance: PIRFENIDONE
  8. EYE DROPS SOL 0.05% OP [Concomitant]
  9. FUROSEMIDE SOL 10MG/ML [Concomitant]
  10. IPRATROPIUM POW BROMIDE [Concomitant]
  11. IRBESARTAN [Concomitant]
     Active Substance: IRBESARTAN
  12. LEVOTHYROXIN TAB 137MCG [Concomitant]
  13. LORATADINE TAB 10MG [Concomitant]
  14. LORAZEPAM TAB 1MG [Concomitant]
  15. MONTELUKAST SODIUM [Concomitant]
     Active Substance: MONTELUKAST SODIUM
  16. PANTOPRAZOLE TAB 40MG [Concomitant]
  17. POTASSIUM POW ASPARTAT [Concomitant]
  18. PREDNISONE [Concomitant]
     Active Substance: PREDNISONE
  19. PRESERVISION TAB AREDS [Concomitant]
  20. VENLAFAXINE TAB 75MG [Concomitant]

REACTIONS (1)
  - Death [None]

NARRATIVE: CASE EVENT DATE: 20220314
